FAERS Safety Report 9491536 (Version 1)
Quarter: 2013Q3

REPORT INFORMATION
  Report Type: Spontaneous
  Country: GB (occurrence: None)
  Receive Date: 20130827
  Receipt Date: 20130827
  Transmission Date: 20140515
  Serious: Yes (Death, Hospitalization)
  Sender: FDA-Public Use
  Company Number: 167-C4047-13082780

PATIENT
  Age: 54 Year
  Sex: Male

DRUGS (6)
  1. CC-4047 [Suspect]
     Indication: PLASMA CELL MYELOMA
     Route: 048
     Dates: start: 20130529, end: 20130809
  2. DEXAMETHASONE (DEXAMETHASONE) (UNKNOWN) [Concomitant]
  3. ASPIRINE (ACETYLSALICYLIC ACID) (UNKNOWN) [Concomitant]
  4. LANSOPRAZOLE (LANSOPRAZOLE) (UNKNOWN) [Concomitant]
  5. SEPTRIN (BACTRIM) (UNKNOWN) [Concomitant]
  6. ACYCLOVIR (ACICLOVIR) (UNKNOWN) [Concomitant]

REACTIONS (3)
  - Bacterial sepsis [None]
  - Pneumonia [None]
  - No therapeutic response [None]
